FAERS Safety Report 7383841-0 (Version None)
Quarter: 2011Q1

REPORT INFORMATION
  Report Type: 
  Country: None (occurrence: None)
  Receive Date: 20110330
  Receipt Date: 20110325
  Transmission Date: 20110831
  Serious: Yes (Life-Threatening, Hospitalization, Other)
  Sender: FDA-Public Use
  Company Number: US-ASTRAZENECA-2010SE17986

PATIENT
  Age: 59 Year
  Sex: Female
  Weight: 65.8 kg

DRUGS (2)
  1. SEROQUEL [Suspect]
     Indication: POST-TRAUMATIC STRESS DISORDER
     Route: 048
  2. SEROQUEL [Suspect]
     Route: 048

REACTIONS (10)
  - FALL [None]
  - POST-TRAUMATIC STRESS DISORDER [None]
  - PSYCHOTIC DISORDER [None]
  - DRUG DOSE OMISSION [None]
  - DEMENTIA [None]
  - COMA [None]
  - SPINAL FRACTURE [None]
  - FLASHBACK [None]
  - INSOMNIA [None]
  - SURGERY [None]
